FAERS Safety Report 18811939 (Version 1)
Quarter: 2021Q1

REPORT INFORMATION
  Report Type: Spontaneous
  Country: SE (occurrence: SE)
  Receive Date: 20210130
  Receipt Date: 20210130
  Transmission Date: 20210419
  Serious: Yes (Life-Threatening, Other)
  Sender: FDA-Public Use
  Company Number: SE-AMGEN-SWESP2021013185

PATIENT
  Age: 16 Year
  Sex: Male

DRUGS (4)
  1. CIRCADIN [Concomitant]
     Active Substance: MELATONIN
     Dosage: UNK
     Dates: start: 20201215, end: 20210108
  2. TARGINIQ ER [Concomitant]
     Active Substance: NALOXONE HYDROCHLORIDE\OXYCODONE HYDROCHLORIDE
     Dosage: UNK
     Dates: start: 20210103, end: 20210108
  3. BLINCYTO [Suspect]
     Active Substance: BLINATUMOMAB
     Indication: LEUKAEMIA
     Dosage: ^STYRKA 84MCG/240ML, DOS 28 MCG/DG^
     Route: 042
     Dates: start: 20201111, end: 20210106
  4. GABAPENTIN. [Concomitant]
     Active Substance: GABAPENTIN
     Dosage: UNK
     Dates: start: 20210104, end: 20210108

REACTIONS (2)
  - Status epilepticus [Recovered/Resolved]
  - Intention tremor [Recovered/Resolved]

NARRATIVE: CASE EVENT DATE: 202101
